FAERS Safety Report 7431904-3 (Version None)
Quarter: 2011Q2

REPORT INFORMATION
  Report Type: 
  Country: None (occurrence: None)
  Receive Date: 20110422
  Receipt Date: 20110418
  Transmission Date: 20111010
  Serious: Yes (Life-Threatening, Hospitalization)
  Sender: FDA-Public Use
  Company Number: FR-PFIZER INC-2011083958

PATIENT
  Age: 84 Year
  Sex: Male

DRUGS (6)
  1. MEDROL [Suspect]
     Dosage: 100 MG, WEEKLY
     Route: 048
     Dates: start: 20100921
  2. CLASTOBAN [Concomitant]
     Dosage: 800 MG, 1X/DAY
     Route: 048
  3. DI-ANTALVIC [Concomitant]
     Dosage: UNK
     Route: 048
  4. ASPEGIC 325 [Concomitant]
     Dosage: 100 MG, 1X/DAY
     Route: 048
  5. REVLIMID [Suspect]
     Indication: MULTIPLE MYELOMA
     Dosage: 10 MG, 1X/DAY
     Dates: start: 20100921
  6. ARANESP [Suspect]
     Dosage: 150 UG, WEEKLY
     Route: 058
     Dates: start: 20101215

REACTIONS (1)
  - ACUTE CORONARY SYNDROME [None]
